FAERS Safety Report 14035000 (Version 1)
Quarter: 2017Q4

REPORT INFORMATION
  Report Type: Spontaneous
  Country: US (occurrence: US)
  Receive Date: 20171003
  Receipt Date: 20171003
  Transmission Date: 20180321
  Serious: No
  Sender: FDA-Public Use
  Company Number: US-PERRIGO-16US021119

PATIENT
  Age: 60 Year
  Sex: Female
  Weight: 85.71 kg

DRUGS (6)
  1. RANITIDINE. [Concomitant]
     Active Substance: RANITIDINE
     Indication: GASTROOESOPHAGEAL REFLUX DISEASE
     Dosage: UNK
     Route: 065
  2. CHILDRENS CETIRIZINE HYDROCHLORIDE ALLERGY [Suspect]
     Active Substance: CETIRIZINE HYDROCHLORIDE
     Indication: RHINORRHOEA
     Dosage: 15 MG, QD
     Route: 051
     Dates: start: 2014, end: 2015
  3. CHILDRENS CETIRIZINE HYDROCHLORIDE ALLERGY [Suspect]
     Active Substance: CETIRIZINE HYDROCHLORIDE
     Indication: LACRIMATION INCREASED
     Dosage: 10 MG, QD
     Route: 051
     Dates: start: 20130909, end: 2014
  4. CHILDRENS CETIRIZINE HYDROCHLORIDE ALLERGY [Suspect]
     Active Substance: CETIRIZINE HYDROCHLORIDE
     Dosage: 20 TO 30 MG, QD
     Route: 051
     Dates: start: 2015, end: 20160930
  5. LEVOTHYROXINE. [Concomitant]
     Active Substance: LEVOTHYROXINE
     Indication: HYPOTHYROIDISM
     Dosage: UNK
     Route: 065
     Dates: start: 2015
  6. PROBIOTICS NOS [Concomitant]
     Active Substance: PROBIOTICS NOS
     Indication: GASTROOESOPHAGEAL REFLUX DISEASE
     Dosage: UNK
     Route: 065

REACTIONS (4)
  - Incorrect route of drug administration [Recovered/Resolved]
  - Off label use [Recovered/Resolved]
  - Therapeutic response unexpected [Unknown]
  - Overdose [Recovered/Resolved]

NARRATIVE: CASE EVENT DATE: 20130909
